FAERS Safety Report 4386130-1 (Version None)
Quarter: 2004Q2

REPORT INFORMATION
  Report Type: 
  Country: None (occurrence: None)
  Receive Date: 20040622
  Receipt Date: 20040609
  Transmission Date: 20050107
  Serious: Yes (Hospitalization)
  Sender: FDA-Public Use
  Company Number: 2004037301

PATIENT
  Age: 64 Year
  Sex: Male
  Weight: 107 kg

DRUGS (1)
  1. SORTIS (ATORVASTATIN) [Suspect]
     Indication: CORONARY ARTERY SURGERY
     Dosage: 10 MG (10 MG 1 IN 1 D), ORAL
     Route: 048

REACTIONS (2)
  - COAGULOPATHY [None]
  - THROMBIN TIME PROLONGED [None]
